FAERS Safety Report 5657262-2 (Version None)
Quarter: 2008Q1

REPORT INFORMATION
  Report Type: 
  Country: None (occurrence: None)
  Receive Date: 20080310
  Receipt Date: 20080305
  Transmission Date: 20080703
  Serious: Yes (Hospitalization)
  Sender: FDA-Public Use
  Company Number: US-ASTRAZENECA-2007UW25435

PATIENT
  Age: 19131 Day
  Sex: Male
  Weight: 122.7 kg

DRUGS (8)
  1. CRESTOR [Suspect]
     Route: 048
     Dates: end: 20071017
  2. ACTONEL [Concomitant]
  3. ATENOLOL [Concomitant]
     Route: 048
  4. LISINOPRIL + HCT [Concomitant]
     Route: 048
  5. LYRICA [Concomitant]
  6. DILAUDID [Concomitant]
  7. KLONOPIN [Concomitant]
  8. SOMA [Concomitant]

REACTIONS (4)
  - HYPONATRAEMIA [None]
  - LIVER FUNCTION TEST ABNORMAL [None]
  - RENAL FAILURE ACUTE [None]
  - RHABDOMYOLYSIS [None]
